FAERS Safety Report 6635078-8 (Version None)
Quarter: 2010Q1

REPORT INFORMATION
  Report Type: 
  Country: None (occurrence: None)
  Receive Date: 20100315
  Receipt Date: 20100302
  Transmission Date: 20100710
  Serious: Yes (Hospitalization)
  Sender: FDA-Public Use
  Company Number: PHHY2010BE12636

PATIENT

DRUGS (3)
  1. GLEEVEC [Suspect]
     Indication: CHRONIC MYELOID LEUKAEMIA
     Dosage: 400 MG DAILY
     Route: 048
  2. GLEEVEC [Suspect]
     Dosage: 200 MG DAILY
     Route: 048
  3. SINTROM [Concomitant]
     Indication: ATRIAL FIBRILLATION

REACTIONS (2)
  - COLON OPERATION [None]
  - RENAL FAILURE [None]
